FAERS Safety Report 7964103-7 (Version None)
Quarter: 2011Q4

REPORT INFORMATION
  Report Type: 
  Country: None (occurrence: None)
  Receive Date: 20111208
  Receipt Date: 20111128
  Transmission Date: 20120403
  Serious: Yes (Other)
  Sender: FDA-Public Use
  Company Number: US-PERRIGO-11US010394

PATIENT
  Age: 27 Year

DRUGS (1)
  1. NITETIME FREE CHRY 6HR LIQ 041 [Suspect]
     Indication: DEPRESSION
     Dosage: 180 ML, SINGLE
     Route: 048
     Dates: start: 20111128, end: 20111128

REACTIONS (2)
  - INTENTIONAL OVERDOSE [None]
  - OFF LABEL USE [None]
